FAERS Safety Report 7157711-7 (Version None)
Quarter: 2010Q4

REPORT INFORMATION
  Report Type: 
  Country: None (occurrence: None)
  Receive Date: 20101214
  Receipt Date: 20100126
  Transmission Date: 20110411
  Serious: No
  Sender: FDA-Public Use
  Company Number: US-ASTRAZENECA-2010SE03839

PATIENT
  Age: 49 Year
  Sex: Female
  Weight: 126.1 kg

DRUGS (1)
  1. CRESTOR [Suspect]
     Route: 048
     Dates: start: 20090101, end: 20090101

REACTIONS (3)
  - HYPERSENSITIVITY [None]
  - PAIN [None]
  - RENAL PAIN [None]
